FAERS Safety Report 12587967 (Version 2)
Quarter: 2017Q2

REPORT INFORMATION
  Report Type: Other
  Country: None (occurrence: PR)
  Receive Date: 20160725
  Receipt Date: 20170509
  Transmission Date: 20170830
  Serious: Yes (Hospitalization)
  Sender: FDA-Public Use
  Company Number: PR-MERCK KGAA-1055493

PATIENT
  Age: 47 Year
  Sex: Female

DRUGS (4)
  1. NOVOTHYROX [Suspect]
     Active Substance: LEVOTHYROXINE SODIUM
     Indication: AUTOIMMUNE THYROIDITIS
     Route: 065
  2. PITAVASTATIN. [Concomitant]
     Active Substance: PITAVASTATIN CALCIUM
     Route: 065
  3. ACETYLSALICYLIC ACID [Concomitant]
     Active Substance: ASPIRIN
     Route: 065
  4. PRITORPLUS [Concomitant]
     Active Substance: HYDROCHLOROTHIAZIDE\TELMISARTAN

REACTIONS (2)
  - Blood thyroid stimulating hormone decreased [Unknown]
  - Stress cardiomyopathy [Recovered/Resolved]
